FAERS Safety Report 8463404 (Version 4)
Quarter: 2012Q4

REPORT INFORMATION
  Report Type: 
  Country: US (occurrence: US)
  Receive Date: 20120316
  Receipt Date: 20120829
  Transmission Date: 20130627
  Serious: Yes (Death)
  Sender: FDA-Public Use
  Company Number: US-ROCHE-1049342

PATIENT
  Sex: Male

DRUGS (7)
  1. LUCENTIS [Suspect]
     Indication: PRODUCT USED FOR UNKNOWN INDICATION
     Dosage: dose: 3.5 mg/0.5 ml
     Route: 050
     Dates: start: 20110914, end: 20120106
  2. AMLODIPINE [Concomitant]
     Indication: HYPERTENSION
     Route: 048
  3. FUROSEMIDE [Concomitant]
     Route: 048
  4. IMDUR [Concomitant]
     Route: 048
  5. METOPROLOL [Concomitant]
     Route: 048
  6. PLAVIX [Concomitant]
     Route: 048
  7. RANEXA [Concomitant]
     Indication: CHEST PAIN
     Route: 048

REACTIONS (1)
  - Cerebrovascular accident [Fatal]
